FAERS Safety Report 4881177-0 (Version None)
Quarter: 2006Q1

REPORT INFORMATION
  Report Type: 
  Country: None (occurrence: None)
  Receive Date: 20060111
  Receipt Date: 20060111
  Transmission Date: 20060701
  Serious: Yes (Other)
  Sender: FDA-Public Use
  Company Number: None

PATIENT
  Age: 85 Year
  Sex: Female
  Weight: 95 kg

DRUGS (2)
  1. SOLU-MEDROL [Suspect]
     Indication: BRONCHITIS ACUTE
     Dosage: 125MG   Q 8 HOURS   IV
     Route: 042
     Dates: start: 20051018, end: 20051020
  2. SOLU-MEDROL [Suspect]
     Indication: DYSPNOEA
     Dosage: 125MG   Q 8 HOURS   IV
     Route: 042
     Dates: start: 20051018, end: 20051020

REACTIONS (4)
  - AZOTAEMIA [None]
  - BLOOD CREATININE INCREASED [None]
  - BLOOD UREA INCREASED [None]
  - CONDITION AGGRAVATED [None]
